FAERS Safety Report 20372570 (Version 1)
Quarter: 2022Q1

REPORT INFORMATION
  Report Type: Spontaneous
  Country: US (occurrence: US)
  Receive Date: 20220125
  Receipt Date: 20220125
  Transmission Date: 20220423
  Serious: Yes (Hospitalization)
  Sender: FDA-Public Use
  Company Number: US-PCCINC-2022-PEL-000024

PATIENT

DRUGS (1)
  1. GABLOFEN [Suspect]
     Active Substance: BACLOFEN
     Indication: Product used for unknown indication
     Dosage: 699 MICROGRAM PER DAY
     Route: 037

REACTIONS (6)
  - Tremor [Recovered/Resolved]
  - Tachycardia [Recovered/Resolved]
  - Muscle spasticity [Recovered/Resolved]
  - Hyperhidrosis [Recovered/Resolved]
  - Drug withdrawal syndrome [Recovered/Resolved]
  - Device kink [Recovered/Resolved]

NARRATIVE: CASE EVENT DATE: 20220109
